FAERS Safety Report 7942430-7 (Version None)
Quarter: 2011Q4

REPORT INFORMATION
  Report Type: 
  Country: None (occurrence: None)
  Receive Date: 20111128
  Receipt Date: 20111118
  Transmission Date: 20120403
  Serious: Yes (Death, Hospitalization)
  Sender: FDA-Public Use
  Company Number: US-GLAXOSMITHKLINE-A0797382A

PATIENT
  Age: 48 Year
  Sex: Male
  Weight: 159.1 kg

DRUGS (13)
  1. PLAVIX [Concomitant]
     Dates: start: 20020701
  2. ZOCOR [Concomitant]
  3. GLUCOTROL [Concomitant]
     Dates: start: 20020701
  4. FOLTX [Concomitant]
  5. GLUCOPHAGE [Concomitant]
     Dates: start: 20020701
  6. AVANDIA [Suspect]
     Indication: TYPE 2 DIABETES MELLITUS
     Dosage: 8MG PER DAY
     Route: 048
     Dates: start: 20020701, end: 20060101
  7. AVANDARYL [Suspect]
     Indication: TYPE 2 DIABETES MELLITUS
     Dosage: 1TAB TWICE PER DAY
     Route: 048
     Dates: start: 20060131, end: 20060426
  8. LOTENSIN [Concomitant]
  9. ALLEGRA [Concomitant]
  10. VIOXX [Concomitant]
  11. TRICOR [Concomitant]
  12. IMDUR [Concomitant]
     Dates: start: 20020701
  13. AVANDAMET [Suspect]
     Indication: DIABETES MELLITUS
     Route: 048
     Dates: end: 20060131

REACTIONS (5)
  - MYOCARDIAL INFARCTION [None]
  - ARRHYTHMIA [None]
  - SUDDEN DEATH [None]
  - CARDIAC DISORDER [None]
  - CORONARY ARTERY DISEASE [None]
